FAERS Safety Report 17825815 (Version 2)
Quarter: 2020Q2

REPORT INFORMATION
  Report Type: Spontaneous
  Country: BR (occurrence: BR)
  Receive Date: 20200526
  Receipt Date: 20200529
  Transmission Date: 20200714
  Serious: Yes (Other)
  Sender: FDA-Public Use
  Company Number: BR-PFIZER INC-2020204791

PATIENT
  Age: 72 Year
  Sex: Female
  Weight: 58.5 kg

DRUGS (11)
  1. REUQUINOL [Interacting]
     Active Substance: HYDROXYCHLOROQUINE SULFATE
     Indication: COVID-19
     Dosage: 400 MG, 1X/DAY
     Route: 048
     Dates: start: 20200331, end: 20200405
  2. MECLIN [Concomitant]
     Dosage: 50 MG, 2X/DAY
     Route: 048
     Dates: start: 20200331, end: 20200410
  3. NOVALGINA [Concomitant]
     Active Substance: METAMIZOLE SODIUM
     Dosage: 1 G, EVERY 6 HOURS AS NEEDED
     Route: 042
     Dates: start: 20200331, end: 20200411
  4. ZITROMAX [Suspect]
     Active Substance: AZITHROMYCIN
     Indication: COVID-19
     Dosage: 500 MG, 1X/DAY
     Route: 042
     Dates: start: 20200330, end: 20200405
  5. EUTHYROX [Concomitant]
     Active Substance: LEVOTHYROXINE SODIUM
     Dosage: 37.5 MG, 1X/DAY
     Route: 048
     Dates: start: 20200331, end: 20200410
  6. DOMPERIDONE [Concomitant]
     Active Substance: DOMPERIDONE
     Dosage: 10 MG, 1X/DAY
  7. LORAZEPAM. [Concomitant]
     Active Substance: LORAZEPAM
     Dosage: 2 MG, 1X/DAY
     Route: 048
     Dates: start: 20200331, end: 20200410
  8. PURAN [Concomitant]
     Active Substance: LEVOTHYROXINE SODIUM
     Dosage: 37.5 UG, 1X/DAY
  9. CLEXANE [Concomitant]
     Active Substance: ENOXAPARIN SODIUM
     Dosage: 40 MG, 1X/DAY
     Route: 058
     Dates: start: 20200330, end: 20200410
  10. CEFTRIAXONA [CEFTRIAXONE] [Concomitant]
     Active Substance: CEFTRIAXONE
     Dosage: 2 G, 1X/DAY
     Route: 042
     Dates: start: 20200331, end: 20200406
  11. NEXIUM [Concomitant]
     Active Substance: ESOMEPRAZOLE MAGNESIUM
     Dosage: 20 MG, 2X/DAY (EVERY 12 HOURS)
     Route: 048
     Dates: start: 20200330, end: 20200410

REACTIONS (6)
  - Drug interaction [Recovered/Resolved]
  - Product use in unapproved indication [Unknown]
  - Pyrexia [Unknown]
  - Anxiety [Unknown]
  - Electrocardiogram QT prolonged [Recovered/Resolved]
  - Off label use [Unknown]

NARRATIVE: CASE EVENT DATE: 2020
